FAERS Safety Report 17492853 (Version 2)
Quarter: 2020Q1

REPORT INFORMATION
  Report Type: Spontaneous
  Country: CH (occurrence: CH)
  Receive Date: 20200304
  Receipt Date: 20200323
  Transmission Date: 20200409
  Serious: Yes (Death, Hospitalization)
  Sender: FDA-Public Use
  Company Number: CH-ALVOGEN-2020-ALVOGEN-107753

PATIENT
  Age: 73 Year
  Sex: Female
  Weight: 47 kg

DRUGS (3)
  1. OXYCODONE [Suspect]
     Active Substance: OXYCODONE
     Indication: ANALGESIC INTERVENTION SUPPORTIVE THERAPY
     Dosage: AS REQUIRED
     Route: 048
  2. NALOXONE HYDROCHLORIDE/OXYCODONE HYDROCHLORIDE [Suspect]
     Active Substance: NALOXONE HYDROCHLORIDE\OXYCODONE HYDROCHLORIDE
     Indication: ANALGESIC INTERVENTION SUPPORTIVE THERAPY
     Dosage: NALOXONE HYDROCHLORIDE: 2.5MG; OXYCODONE HYDROCHLORIDE: 5MG
     Dates: start: 201904, end: 2019
  3. NALOXONE HYDROCHLORIDE/OXYCODONE HYDROCHLORIDE [Suspect]
     Active Substance: NALOXONE HYDROCHLORIDE\OXYCODONE HYDROCHLORIDE
     Indication: ANALGESIC INTERVENTION SUPPORTIVE THERAPY
     Dosage: NALOXONE HYDROCHLORIDE: 10MG; OXYCODONE HYDROCHLORIDE: 20MG.
     Dates: start: 2019, end: 20190801

REACTIONS (3)
  - Oesophageal hypomotility [Recovered/Resolved]
  - Constipation [Unknown]
  - Oesophageal achalasia [Recovered/Resolved]

NARRATIVE: CASE EVENT DATE: 2019
